FAERS Safety Report 9639764 (Version 1)
Quarter: 2013Q4

REPORT INFORMATION
  Report Type: Spontaneous
  Country: US (occurrence: None)
  Receive Date: 20131021
  Receipt Date: 20131021
  Transmission Date: 20140711
  Serious: Yes (Hospitalization, Other)
  Sender: FDA-Public Use
  Company Number: None

PATIENT
  Age: 52 Year
  Sex: Male
  Weight: 92.99 kg

DRUGS (1)
  1. PREDNISONE [Suspect]
     Indication: COLITIS ULCERATIVE
     Dosage: 20 MG TWICE DAILY TAKEN BY MOUTH
     Route: 048
     Dates: start: 20131007, end: 20131031

REACTIONS (2)
  - Atrial fibrillation [None]
  - Agitation [None]
